FAERS Safety Report 16473682 (Version 2)
Quarter: 2019Q3

REPORT INFORMATION
  Report Type: Spontaneous
  Country: US (occurrence: US)
  Receive Date: 20190625
  Receipt Date: 20190920
  Transmission Date: 20191004
  Serious: Yes (Other)
  Sender: FDA-Public Use
  Company Number: US-TORRENT-00008916

PATIENT
  Age: 66 Year
  Sex: Male
  Weight: 86 kg

DRUGS (5)
  1. LOSARTAN POTASSIUM. [Suspect]
     Active Substance: LOSARTAN POTASSIUM
     Indication: HYPERTENSION
     Dosage: STARTED SINCE FEW YEARS.?STOPPED THE MEDICATION ABOUT 4 TO 5 MONTHS AGO.
     Route: 048
     Dates: end: 201905
  2. METROPROLOL [Concomitant]
     Active Substance: METOPROLOL
     Indication: CARDIAC OPERATION
  3. AMLODIPINE BESYLATE. [Concomitant]
     Active Substance: AMLODIPINE BESYLATE
     Indication: CARDIAC OPERATION
  4. IRBESARTAN. [Concomitant]
     Active Substance: IRBESARTAN
     Indication: PRODUCT USED FOR UNKNOWN INDICATION
  5. LIPITROL [Concomitant]
     Indication: DYSLIPIDAEMIA

REACTIONS (3)
  - Carbohydrate antigen 19-9 increased [Recovered/Resolved]
  - Apparent death [Recovered/Resolved]
  - Alopecia [Not Recovered/Not Resolved]

NARRATIVE: CASE EVENT DATE: 2018
